FAERS Safety Report 16513733 (Version 1)
Quarter: 2019Q3

REPORT INFORMATION
  Report Type: Spontaneous
  Country: DK (occurrence: DK)
  Receive Date: 20190702
  Receipt Date: 20190702
  Transmission Date: 20191004
  Serious: Yes (Life-Threatening)
  Sender: FDA-Public Use
  Company Number: DK-PFIZER INC-2019281306

PATIENT
  Age: 20 Year
  Sex: Male
  Weight: 76 kg

DRUGS (1)
  1. ZESSLY [Suspect]
     Active Substance: INFLIXIMAB
     Indication: COLITIS ULCERATIVE
     Dosage: 1 DF, Q28D, STYRKE: 100 MG)
     Route: 042
     Dates: start: 20190528, end: 20190528

REACTIONS (4)
  - Flushing [Recovered/Resolved]
  - Infusion related reaction [Recovered/Resolved]
  - Chest discomfort [Recovered/Resolved]
  - Dyspnoea [Recovered/Resolved]

NARRATIVE: CASE EVENT DATE: 20190528
